FAERS Safety Report 9187282 (Version 1)
Quarter: 2013Q1

REPORT INFORMATION
  Report Type: Spontaneous
  Country: FR (occurrence: FR)
  Receive Date: 20130325
  Receipt Date: 20130325
  Transmission Date: 20140127
  Serious: Yes (Hospitalization)
  Sender: FDA-Public Use
  Company Number: FR-PFIZER INC-2013080423

PATIENT
  Age: 17 Year
  Sex: Female
  Weight: 60 kg

DRUGS (2)
  1. TRINORDIOL [Suspect]
     Indication: DYSMENORRHOEA
     Dosage: 1 DF (50-75-125UG, 30-40-30UG), 1X/DAY
     Route: 048
     Dates: start: 200607, end: 200608
  2. DUPHASTON [Concomitant]
     Indication: ENDOMETRIOSIS
     Dosage: 1 DF, 14 DAYS ON 28 DAYS
     Route: 048
     Dates: start: 200510, end: 200604

REACTIONS (2)
  - Pulmonary embolism [Recovered/Resolved]
  - Pulmonary arterial hypertension [Recovered/Resolved]
